FAERS Safety Report 4413300-6 (Version None)
Quarter: 2004Q3

REPORT INFORMATION
  Report Type: 
  Country: None (occurrence: None)
  Receive Date: 20040728
  Receipt Date: 20040713
  Transmission Date: 20050211
  Serious: Yes (Hospitalization)
  Sender: FDA-Public Use
  Company Number: 2004-DE-03873GD

PATIENT
  Age: 78 Year
  Sex: Female

DRUGS (3)
  1. PRAMIPEXOLE (PRAMIPEXOLE DIHYDROCHLORIDE) [Suspect]
     Indication: PARKINSON'S DISEASE
     Dosage: 3 MG (THREE TIMES A DAY)
  2. SINEMET [Concomitant]
  3. QUETIAPINE [Concomitant]

REACTIONS (11)
  - ACTIVITIES OF DAILY LIVING IMPAIRED [None]
  - APRAXIA [None]
  - DEMENTIA [None]
  - DEPRESSION [None]
  - DRY THROAT [None]
  - DYSPHONIA [None]
  - FEELINGS OF WORTHLESSNESS [None]
  - HALLUCINATION, OLFACTORY [None]
  - HALLUCINATION, VISUAL [None]
  - MEMORY IMPAIRMENT [None]
  - MOVEMENT DISORDER [None]
